FAERS Safety Report 23996535 (Version 1)
Quarter: 2024Q2

REPORT INFORMATION
  Report Type: Spontaneous
  Country: ES (occurrence: ES)
  Receive Date: 20240620
  Receipt Date: 20240620
  Transmission Date: 20240716
  Serious: Yes (Other)
  Sender: FDA-Public Use
  Company Number: None

PATIENT
  Age: 19 Year
  Sex: Female

DRUGS (1)
  1. LISDEXAMFETAMINE [Suspect]
     Active Substance: LISDEXAMFETAMINE
     Indication: Attention deficit hyperactivity disorder
     Dosage: LISDEXANFETAMINA (8399A)
     Route: 065
     Dates: start: 20240311, end: 20240314

REACTIONS (1)
  - Pyramidal tract syndrome [Recovering/Resolving]

NARRATIVE: CASE EVENT DATE: 20240314
